FAERS Safety Report 7645095-7 (Version None)
Quarter: 2011Q3

REPORT INFORMATION
  Report Type: 
  Country: None (occurrence: None)
  Receive Date: 20110729
  Receipt Date: 20110722
  Transmission Date: 20111222
  Serious: Yes (Other)
  Sender: FDA-Public Use
  Company Number: PHEH2010US03495

PATIENT
  Sex: Female
  Weight: 91 kg

DRUGS (23)
  1. POTASSIUM CHLORIDE [Concomitant]
  2. DARVOCET-N 50 [Concomitant]
  3. CHANTIX [Concomitant]
  4. NORVASC [Concomitant]
  5. BENTYL [Concomitant]
  6. TYLENOL-500 [Concomitant]
  7. COZAAR [Concomitant]
  8. ALDACTONE [Concomitant]
  9. AMPICILLIN SODIUM [Concomitant]
  10. ALLEGRA [Concomitant]
  11. LASIX [Concomitant]
  12. HYDROCHLOROTHIAZIDE [Concomitant]
  13. TOPROL-XL [Concomitant]
  14. LIPITOR [Concomitant]
  15. LORTAB [Concomitant]
  16. CEPHALEXIN [Concomitant]
  17. ATENOLOL [Concomitant]
  18. ASPIRIN [Concomitant]
  19. PROTONIX [Concomitant]
  20. ZELNORM [Suspect]
     Indication: GASTROINTESTINAL DISORDER
     Dosage: UNK
     Dates: start: 20060101
  21. AMOXICILLIN [Concomitant]
  22. LOTRISONE [Concomitant]
  23. ULTRAM [Concomitant]

REACTIONS (35)
  - DYSPNOEA PAROXYSMAL NOCTURNAL [None]
  - SINUS BRADYCARDIA [None]
  - HYPERTENSION [None]
  - BACK PAIN [None]
  - LIGAMENT SPRAIN [None]
  - HYPOAESTHESIA [None]
  - COSTOCHONDRITIS [None]
  - TRICUSPID VALVE INCOMPETENCE [None]
  - CHEST PAIN [None]
  - THYROID DISORDER [None]
  - VOMITING [None]
  - MUSCULOSKELETAL CHEST PAIN [None]
  - ANGINA UNSTABLE [None]
  - DYSPNOEA [None]
  - SINUS ARRHYTHMIA [None]
  - ABDOMINAL PAIN [None]
  - NAUSEA [None]
  - SINUSITIS [None]
  - HYPERHIDROSIS [None]
  - LEFT VENTRICULAR HYPERTROPHY [None]
  - ORTHOPNOEA [None]
  - CORONARY ARTERY DISEASE [None]
  - IRRITABLE BOWEL SYNDROME [None]
  - HEADACHE [None]
  - DUODENITIS [None]
  - ARTERIOSCLEROSIS [None]
  - HYPOKALAEMIA [None]
  - MITRAL VALVE PROLAPSE [None]
  - GASTROOESOPHAGEAL REFLUX DISEASE [None]
  - DIASTOLIC DYSFUNCTION [None]
  - HIATUS HERNIA [None]
  - INJURY [None]
  - FALL [None]
  - EXOSTOSIS [None]
  - OEDEMA PERIPHERAL [None]
